FAERS Safety Report 6854196-2 (Version None)
Quarter: 2010Q3

REPORT INFORMATION
  Report Type: 
  Country: None (occurrence: None)
  Receive Date: 20100717
  Receipt Date: 20080813
  Transmission Date: 20110219
  Serious: No
  Sender: FDA-Public Use
  Company Number: US-PFIZER INC-2008001150

PATIENT
  Sex: Female
  Weight: 53.2 kg

DRUGS (7)
  1. CHANTIX [Suspect]
     Indication: SMOKING CESSATION THERAPY
     Route: 048
     Dates: start: 20071115
  2. LISINOPRIL [Concomitant]
     Indication: HYPERTENSION
     Route: 048
  3. ATENOLOL [Concomitant]
     Indication: HYPERTENSION
     Route: 048
  4. LIPITOR [Concomitant]
     Indication: BLOOD CHOLESTEROL INCREASED
     Route: 048
  5. ACTONEL [Concomitant]
     Route: 048
  6. VITAMINS [Concomitant]
     Route: 048
  7. CALCIUM [Concomitant]
     Route: 048

REACTIONS (2)
  - DEPRESSION [None]
  - NAUSEA [None]
